FAERS Safety Report 6470507-4 (Version None)
Quarter: 2009Q4

REPORT INFORMATION
  Report Type: 
  Country: None (occurrence: None)
  Receive Date: 20091201
  Receipt Date: 20091110
  Transmission Date: 20100525
  Serious: Yes (Other)
  Sender: FDA-Public Use
  Company Number: 220070J09GBR

PATIENT
  Sex: Female

DRUGS (1)
  1. SAIZEN [Suspect]
     Dosage: 0.5 MG

REACTIONS (2)
  - ADENOIDAL DISORDER [None]
  - SLEEP APNOEA SYNDROME [None]
